FAERS Safety Report 3777657 (Version 2)
Quarter: 2020Q3

REPORT INFORMATION
  Report Type: Spontaneous
  Country: GB (occurrence: GB)
  Receive Date: 20020326
  Receipt Date: 20200731
  Transmission Date: 20201103
  Serious: Yes (Disabling, Other)
  Sender: FDA-Public Use
  Company Number: PHBS2002GB03772

PATIENT
  Age: 47 Year
  Sex: Male

DRUGS (6)
  1. LEVETIRACETAM. [Interacting]
     Active Substance: LEVETIRACETAM
     Dosage: 500 MG, 1 TIME A DAY
     Route: 065
  2. CARBAMAZEPINE. [Suspect]
     Active Substance: CARBAMAZEPINE
     Indication: SEIZURE
     Dosage: 800 MG, 2 TIMES A DAY (CONTROL?RELEASE)
     Route: 065
  3. CARBAMAZEPINE. [Interacting]
     Active Substance: CARBAMAZEPINE
     Dosage: 600 MG, 2 TIMES A DAY
     Route: 065
  4. LEVETIRACETAM. [Interacting]
     Active Substance: LEVETIRACETAM
     Indication: SEIZURE
     Dosage: 1000 MG, 2 TIMES A DAY
     Route: 065
  5. VALPROATE SODIUM. [Concomitant]
     Active Substance: VALPROATE SODIUM
     Indication: SEIZURE
     Dosage: 700 MG, 2 TIMES A DAY
     Route: 065
  6. LAMOTRIGINE. [Concomitant]
     Active Substance: LAMOTRIGINE
     Indication: SEIZURE
     Dosage: 100 MG, 2 TIMES A DAY
     Route: 065

REACTIONS (4)
  - Ataxia [Recovered/Resolved]
  - Drug interaction [Unknown]
  - Nystagmus [Recovered/Resolved]
  - Toxicity to various agents [Recovered/Resolved]
